FAERS Safety Report 7350368-1 (Version None)
Quarter: 2011Q1

REPORT INFORMATION
  Report Type: 
  Country: None (occurrence: None)
  Receive Date: 20110222
  Receipt Date: 20101104
  Transmission Date: 20110831
  Serious: No
  Sender: FDA-Public Use
  Company Number: 020024

PATIENT
  Age: 59 Year
  Sex: Male
  Weight: 68 kg

DRUGS (5)
  1. DEPAKOTE ER [Concomitant]
  2. KEPPRA [Concomitant]
  3. LACOSAMIDE [Suspect]
     Indication: CONVULSION
     Dosage: (50 MG BID ORAL), (100 MG BID, DOSE INCREASED ORAL)
     Route: 048
     Dates: start: 20100628, end: 20100727
  4. LACOSAMIDE [Suspect]
     Indication: CONVULSION
     Dosage: (50 MG BID ORAL), (100 MG BID, DOSE INCREASED ORAL)
     Route: 048
     Dates: start: 20100614, end: 20100627
  5. FELBAMATE [Concomitant]

REACTIONS (3)
  - DRUG INEFFECTIVE [None]
  - ABNORMAL BEHAVIOUR [None]
  - VERBAL ABUSE [None]
